FAERS Safety Report 14110570 (Version 3)
Quarter: 2018Q3

REPORT INFORMATION
  Report Type: Report from Study
  Country: DE (occurrence: DE)
  Receive Date: 20171020
  Receipt Date: 20180928
  Transmission Date: 20181010
  Serious: Yes (Life-Threatening, Hospitalization)
  Sender: FDA-Public Use
  Company Number: DE-JNJFOC-20160417084

PATIENT
  Age: 6 Decade
  Sex: Female

DRUGS (5)
  1. LUMIGAN [Concomitant]
     Active Substance: BIMATOPROST
     Route: 065
     Dates: start: 20100101
  2. MESALAZINE [Concomitant]
     Active Substance: MESALAMINE
     Dosage: TRADE NAME IS SALOFALK.
     Route: 065
  3. SIMPONI [Suspect]
     Active Substance: GOLIMUMAB
     Indication: COLITIS ULCERATIVE
     Route: 058
     Dates: start: 20150914, end: 20160627
  4. LEVOTHYROXINE. [Concomitant]
     Active Substance: LEVOTHYROXINE
     Dosage: 50 MCG
     Route: 065
     Dates: start: 20100101
  5. OLMESARTAN MEDOXOMIL. [Concomitant]
     Active Substance: OLMESARTAN MEDOXOMIL
     Dosage: TRADE NAME IS VOTUM.
     Route: 065

REACTIONS (6)
  - Osteoporosis [Not Recovered/Not Resolved]
  - Subileus [Recovered/Resolved]
  - Ileus [Recovered/Resolved]
  - Colectomy [Recovered/Resolved]
  - Large intestinal stenosis [Recovering/Resolving]
  - Mechanical ileus [Not Recovered/Not Resolved]

NARRATIVE: CASE EVENT DATE: 20160107
